FAERS Safety Report 5264907-8 (Version None)
Quarter: 2007Q1

REPORT INFORMATION
  Report Type: 
  Country: None (occurrence: None)
  Receive Date: 20061117
  Receipt Date: 20060425
  Transmission Date: 20070707
  Serious: Yes (Other)
  Sender: FDA-Public Use
  Company Number: US-JNJFOC-20060405811

PATIENT
  Age: 74 Year
  Sex: Female
  Weight: 68.0396 kg

DRUGS (5)
  1. LEVAQUIN [Suspect]
     Indication: KIDNEY INFECTION
     Dosage: 250 MG, 1 IN 1 DAY, ORAL
     Route: 048
     Dates: start: 20060419, end: 20060424
  2. PHENAZOPYRIDINE (PHENAZOPYRIDINE) [Concomitant]
  3. DIOVAN [Concomitant]
  4. MICRONASE [Concomitant]
  5. ASPIRIN [Concomitant]

REACTIONS (5)
  - BLOOD PRESSURE INCREASED [None]
  - CARDIAC FIBRILLATION [None]
  - CHEST DISCOMFORT [None]
  - MUSCLE SPASMS [None]
  - PSYCHOMOTOR HYPERACTIVITY [None]
